FAERS Safety Report 25180625 (Version 1)
Quarter: 2025Q2

REPORT INFORMATION
  Report Type: Spontaneous
  Country: US (occurrence: US)
  Receive Date: 20250409
  Receipt Date: 20250409
  Transmission Date: 20250717
  Serious: No
  Sender: GILEAD
  Company Number: US-GILEAD-2025-0709878

PATIENT
  Sex: Female

DRUGS (3)
  1. LIVDELZI [Suspect]
     Active Substance: SELADELPAR LYSINE
     Indication: Product used for unknown indication
     Dosage: 10 MG, QD
     Route: 065
  2. LIVDELZI [Suspect]
     Active Substance: SELADELPAR LYSINE
     Dosage: 10 MG, Q3DAYS
     Route: 065
  3. LIVDELZI [Suspect]
     Active Substance: SELADELPAR LYSINE
     Route: 065

REACTIONS (2)
  - Nausea [Unknown]
  - Intentional product use issue [Recovered/Resolved]

NARRATIVE: CASE EVENT DATE: 20250408
